FAERS Safety Report 17291597 (Version 1)
Quarter: 2020Q1

REPORT INFORMATION
  Report Type: Spontaneous
  Country: US (occurrence: US)
  Receive Date: 20200117
  Receipt Date: 20200117
  Transmission Date: 20200409
  Serious: Yes (Death)
  Sender: FDA-Public Use
  Company Number: None

PATIENT
  Age: 62 Year
  Sex: Male

DRUGS (14)
  1. CAPECITABINE. [Suspect]
     Active Substance: CAPECITABINE
     Indication: RECTAL CANCER
     Dosage: ?          OTHER FREQUENCY:3X DAY AS DIRECTED;?
     Route: 048
     Dates: start: 20190214, end: 20191002
  2. TESTOPEL MIS PELLETS [Concomitant]
     Dates: start: 20181016, end: 20191002
  3. VITAMIN D3 CHW 400 UNIT [Concomitant]
     Dates: start: 20181016, end: 20191002
  4. CURCUMIN 95 CAP 500MG [Concomitant]
     Dates: start: 20181016, end: 20191002
  5. EGCG POW [Concomitant]
     Dates: start: 20181016, end: 20191002
  6. NALTREXONE TAB 50MG [Concomitant]
     Dates: start: 20181029, end: 20191002
  7. ALPHA LIPOIC CAP 100MG [Concomitant]
     Dates: start: 20181016, end: 20191002
  8. B-12 TAB 500MCG [Concomitant]
     Dates: start: 20181016, end: 20191002
  9. FISH OIL CAP 500MG [Concomitant]
     Dates: start: 20181016, end: 20191002
  10. METFORMIN [Concomitant]
     Active Substance: METFORMIN HYDROCHLORIDE
     Dates: start: 20181016, end: 20191002
  11. CAPECITABINE. [Suspect]
     Active Substance: CAPECITABINE
     Indication: COLON CANCER
     Dosage: ?          OTHER FREQUENCY:3X DAY AS DIRECTED;?
     Route: 048
     Dates: start: 20190214, end: 20191002
  12. MELATONIN TAB 3MG [Concomitant]
     Active Substance: MELATONIN
     Dates: start: 20181016, end: 20191002
  13. MILK THISTLE CAP 200MG [Concomitant]
     Dates: start: 20181016, end: 20191002
  14. VITAMIN C TAB 500MG [Concomitant]
     Dates: start: 20181016, end: 20191002

REACTIONS (1)
  - Death [None]

NARRATIVE: CASE EVENT DATE: 20191002
